FAERS Safety Report 21362200 (Version 2)
Quarter: 2022Q4

REPORT INFORMATION
  Report Type: Report from Study
  Country: JP (occurrence: JP)
  Receive Date: 20220922
  Receipt Date: 20221107
  Transmission Date: 20230113
  Serious: No
  Sender: FDA-Public Use
  Company Number: JP-MTPC-MTPC2022-0024883

PATIENT
  Age: 53 Year
  Sex: Male

DRUGS (8)
  1. EDARAVONE [Suspect]
     Active Substance: EDARAVONE
     Indication: Amyotrophic lateral sclerosis
     Dosage: UNK
     Route: 041
  2. EDARAVONE [Suspect]
     Active Substance: EDARAVONE
     Dosage: 60 MILLIGRAM, QD
     Route: 041
     Dates: start: 20180827, end: 20180831
  3. EDARAVONE [Suspect]
     Active Substance: EDARAVONE
     Dosage: 60 MILLIGRAM, QD
     Route: 041
     Dates: start: 20190729, end: 20190730
  4. EDARAVONE [Suspect]
     Active Substance: EDARAVONE
     Dosage: 60 MILLIGRAM, QD
     Route: 041
     Dates: start: 20190820, end: 20190902
  5. EDARAVONE [Suspect]
     Active Substance: EDARAVONE
     Dosage: 60 MILLIGRAM, QD
     Route: 041
     Dates: start: 20190918, end: 20190930
  6. EDARAVONE [Suspect]
     Active Substance: EDARAVONE
     Dosage: 60 MILLIGRAM, QD
     Route: 041
     Dates: start: 20191015, end: 20191024
  7. EDARAVONE [Suspect]
     Active Substance: EDARAVONE
     Dosage: 60 MILLIGRAM, QD
     Route: 041
     Dates: start: 20191111, end: 20191122
  8. EDARAVONE [Suspect]
     Active Substance: EDARAVONE
     Dosage: 60 MILLIGRAM, QD
     Route: 041
     Dates: start: 20200205, end: 20200207

REACTIONS (1)
  - Liver disorder [Recovered/Resolved]

NARRATIVE: CASE EVENT DATE: 20191122
